FAERS Safety Report 8202297-9 (Version None)
Quarter: 2012Q1

REPORT INFORMATION
  Report Type: 
  Country: None (occurrence: None)
  Receive Date: 20120312
  Receipt Date: 20120309
  Transmission Date: 20120608
  Serious: Yes (Other)
  Sender: FDA-Public Use
  Company Number: JP-EISAI INC-E2020-10467-SPO-JP

PATIENT
  Age: 86 Year
  Sex: Female

DRUGS (5)
  1. DULOXETIME HYDROCHLORIDE [Interacting]
     Indication: DEPRESSION
     Route: 048
  2. BROTIZOLAM [Suspect]
     Indication: DEPRESSION
     Route: 048
  3. DONEPEZIL HCL [Interacting]
     Indication: DEMENTIA
     Route: 048
  4. ROSUVASTATIN [Interacting]
     Route: 048
  5. DONEPEZIL HCL [Interacting]
     Route: 048

REACTIONS (2)
  - DRUG INTERACTION [None]
  - DELIRIUM [None]
